FAERS Safety Report 8346537-4 (Version None)
Quarter: 2012Q2

REPORT INFORMATION
  Report Type: 
  Country: None (occurrence: None)
  Receive Date: 20120507
  Receipt Date: 20120507
  Transmission Date: 20120825
  Serious: No
  Sender: FDA-Public Use
  Company Number: None

PATIENT
  Sex: Female
  Weight: 90.7194 kg

DRUGS (1)
  1. LETAIRIS [Suspect]
     Indication: PULMONARY HYPERTENSION
     Dosage: 5 MG. DAILY PO
     Route: 048
     Dates: start: 20120319, end: 20120502

REACTIONS (4)
  - VOMITING [None]
  - OEDEMA PERIPHERAL [None]
  - NAUSEA [None]
  - HEADACHE [None]
